FAERS Safety Report 8421081-4 (Version None)
Quarter: 2012Q2

REPORT INFORMATION
  Report Type: 
  Country: None (occurrence: None)
  Receive Date: 20120608
  Receipt Date: 20120525
  Transmission Date: 20120825
  Serious: Yes (Death, Hospitalization)
  Sender: FDA-Public Use
  Company Number: DE-RANBAXY-2009RR-27522

PATIENT
  Age: 89 Year
  Sex: Female
  Weight: 71 kg

DRUGS (8)
  1. METRONIDAZOLE [Concomitant]
     Indication: PNEUMONIA
     Dosage: 500 MG, TID
     Route: 042
     Dates: start: 20090425, end: 20090429
  2. CALCILAC KT [Concomitant]
     Indication: BREAST CANCER METASTATIC
     Dosage: 1 DF, UNK
     Route: 048
     Dates: start: 20090409, end: 20090506
  3. CEFOTIAM HYDROCHLORIDE [Suspect]
     Indication: PNEUMONIA
     Dosage: 2 G, UNK
     Route: 042
     Dates: start: 20090425, end: 20090429
  4. FENTANYL [Concomitant]
     Indication: BREAST CANCER METASTATIC
     Dosage: 4.8 MG, TID
     Route: 062
     Dates: start: 20080101, end: 20090506
  5. PANTOPRAZOLE [Suspect]
     Indication: PROPHYLAXIS AGAINST GASTROINTESTINAL ULCER
     Dosage: 40 MG, BID
     Route: 048
     Dates: start: 20080101, end: 20090506
  6. MOXIFLOXACIN [Suspect]
     Indication: PNEUMONIA
     Dosage: 400 MG, QD
     Route: 048
     Dates: start: 20090430, end: 20090501
  7. METAMIZOLE [Concomitant]
     Indication: PAIN
     Dosage: 750 MG, UNK
     Route: 048
     Dates: start: 20080101, end: 20090506
  8. TORSEMIDE [Concomitant]
     Indication: RENAL FAILURE CHRONIC
     Dosage: 10 MG, UNK
     Route: 048
     Dates: start: 20090409, end: 20090501

REACTIONS (2)
  - DRUG INTERACTION [None]
  - PSEUDOMEMBRANOUS COLITIS [None]
